FAERS Safety Report 14894914 (Version 2)
Quarter: 2018Q2

REPORT INFORMATION
  Report Type: Spontaneous
  Country: ID (occurrence: ID)
  Receive Date: 20180515
  Receipt Date: 20180518
  Transmission Date: 20180711
  Serious: Yes (Death)
  Sender: FDA-Public Use
  Company Number: ID-ROCHE-2124238

PATIENT
  Age: 70 Year
  Sex: Male

DRUGS (2)
  1. ESBRIET [Suspect]
     Active Substance: PIRFENIDONE
     Indication: IDIOPATHIC PULMONARY FIBROSIS
     Dosage: 1 CAPSULE, 3 TIMES DAILY
     Route: 048
     Dates: start: 20180423, end: 20180506
  2. ESBRIET [Suspect]
     Active Substance: PIRFENIDONE
     Dosage: 2 CAPSULES, 3 TIMES DAILY
     Route: 048
     Dates: start: 20180507, end: 20180514

REACTIONS (1)
  - Lung neoplasm malignant [Fatal]

NARRATIVE: CASE EVENT DATE: 20180514
